FAERS Safety Report 21049220 (Version 1)
Quarter: 2022Q3

REPORT INFORMATION
  Report Type: Spontaneous
  Country: US (occurrence: None)
  Receive Date: 20220706
  Receipt Date: 20220706
  Transmission Date: 20221027
  Serious: Yes (Hospitalization)
  Sender: FDA-Public Use
  Company Number: None

PATIENT
  Sex: Male

DRUGS (2)
  1. HUMIRA [Suspect]
     Active Substance: ADALIMUMAB
     Indication: Colitis ulcerative
     Dosage: OTHER QUANTITY : 40 MG/0.4ML;?FREQUENCY : EVERY OTHER WEEK;?
     Route: 058
  2. HUMIRA [Suspect]
     Active Substance: ADALIMUMAB
     Dosage: FREQUENCY : EVERY OTHER WEEK;?
     Route: 058

REACTIONS (3)
  - Diarrhoea [None]
  - Impaired quality of life [None]
  - Therapy interrupted [None]
